FAERS Safety Report 24092796 (Version 2)
Quarter: 2024Q4

REPORT INFORMATION
  Report Type: Spontaneous
  Country: US (occurrence: US)
  Receive Date: 20240715
  Receipt Date: 20241003
  Transmission Date: 20250115
  Serious: No
  Sender: PFIZER
  Company Number: US-SEATTLE GENETICS-2024SGN06088

PATIENT
  Age: 83 Year
  Sex: Female

DRUGS (1)
  1. TUKYSA [Suspect]
     Active Substance: TUCATINIB
     Dosage: TWO 150 MG TABLETS TWICE PER DAY WITH FOOD
     Dates: start: 202311, end: 20240618

REACTIONS (2)
  - Malaise [Unknown]
  - Pain [Unknown]
